FAERS Safety Report 8189269-8 (Version None)
Quarter: 2012Q1

REPORT INFORMATION
  Report Type: 
  Country: None (occurrence: None)
  Receive Date: 20120307
  Receipt Date: 20120224
  Transmission Date: 20120608
  Serious: Yes (Hospitalization)
  Sender: FDA-Public Use
  Company Number: US-ELI_LILLY_AND_COMPANY-US201202007678

PATIENT
  Sex: Female

DRUGS (6)
  1. CALCIUM [Concomitant]
  2. PREDNISONE TAB [Concomitant]
  3. FORTEO [Suspect]
     Indication: OSTEOPOROSIS
     Dosage: 20 UG, QD
     Route: 065
  4. AMLODIPINE [Concomitant]
  5. HYDROCODONE BITARTRATE AND ACETAMINOPHEN [Concomitant]
  6. LEFLUNOMIDE [Concomitant]

REACTIONS (2)
  - BACK PAIN [None]
  - SPINAL FRACTURE [None]
